FAERS Safety Report 7961466-3 (Version None)
Quarter: 2011Q4

REPORT INFORMATION
  Report Type: 
  Country: None (occurrence: None)
  Receive Date: 20111207
  Receipt Date: 20111202
  Transmission Date: 20120403
  Serious: Yes (Hospitalization)
  Sender: FDA-Public Use
  Company Number: FR-SANOFI-AVENTIS-2011SA079266

PATIENT
  Age: 38 Year
  Sex: Male

DRUGS (4)
  1. VOLTAREN [Suspect]
     Route: 048
  2. SULFASALAZINE [Suspect]
     Route: 065
     Dates: end: 20110101
  3. ETANERCEPT [Suspect]
     Route: 058
     Dates: start: 20110204, end: 20110411
  4. RIFAMPIN AND ISONIAZID [Suspect]
     Route: 048
     Dates: start: 20110115, end: 20110406

REACTIONS (1)
  - HAIRY CELL LEUKAEMIA [None]
